FAERS Safety Report 7522026-1 (Version None)
Quarter: 2011Q2

REPORT INFORMATION
  Report Type: 
  Country: None (occurrence: None)
  Receive Date: 20110603
  Receipt Date: 20110523
  Transmission Date: 20111010
  Serious: Yes (Other)
  Sender: FDA-Public Use
  Company Number: PHHY2011BR46113

PATIENT
  Sex: Female

DRUGS (4)
  1. TRILEPTAL [Suspect]
     Dosage: 1 DF, BID
  2. TRILEPTAL [Suspect]
     Indication: TRIGEMINAL NEURALGIA
     Dosage: 1 DF, BID
     Route: 048
     Dates: start: 20090101
  3. TRILEPTAL [Suspect]
     Dosage: ? TABLET IN THE MORNING AND ? TABLET AT NIGHT
     Route: 048
     Dates: end: 20100915
  4. TRILEPTAL [Suspect]
     Dosage: 0.5 DF, BID
     Route: 048

REACTIONS (7)
  - LENTIGO [None]
  - SOMNOLENCE [None]
  - PARAESTHESIA [None]
  - HYPOTHYROIDISM [None]
  - DRY MOUTH [None]
  - NAUSEA [None]
  - FATIGUE [None]
